FAERS Safety Report 16351262 (Version 3)
Quarter: 2025Q3

REPORT INFORMATION
  Report Type: Spontaneous
  Country: EU (occurrence: EU)
  Receive Date: 20190524
  Receipt Date: 20250906
  Transmission Date: 20251021
  Serious: Yes (Hospitalization, Other)
  Sender: AUROBINDO
  Company Number: EU-AUROBINDO-AUR-APL-2019-028908

PATIENT
  Age: 73 Year
  Sex: Male

DRUGS (2)
  1. AZITHROMYCIN [Suspect]
     Active Substance: AZITHROMYCIN
     Indication: Respiratory tract infection
     Route: 065
  2. CEFIXIME [Concomitant]
     Active Substance: CEFIXIME
     Indication: Respiratory tract infection
     Route: 065

REACTIONS (13)
  - Respiratory rate increased [Unknown]
  - Bacillus Calmette-Guerin infection [Recovering/Resolving]
  - Pyrexia [Unknown]
  - Normochromic anaemia [Unknown]
  - Hepatitis cholestatic [Unknown]
  - Kidney infection [Unknown]
  - Infection [Unknown]
  - Cachexia [Unknown]
  - Inflammation [Unknown]
  - Chills [Unknown]
  - Medication error [Recovered/Resolved]
  - Condition aggravated [Recovering/Resolving]
  - Normocytic anaemia [Unknown]
